FAERS Safety Report 5292724-1 (Version None)
Quarter: 2007Q2

REPORT INFORMATION
  Report Type: 
  Country: None (occurrence: None)
  Receive Date: 20070404
  Receipt Date: 20070322
  Transmission Date: 20071010
  Serious: Yes (Other)
  Sender: FDA-Public Use
  Company Number: 2007BI004952

PATIENT
  Age: 56 Year
  Sex: Female

DRUGS (2)
  1. NATALIZUMAB [Suspect]
     Indication: MULTIPLE SCLEROSIS
     Dosage: IV
     Route: 042
     Dates: start: 20070204
  2. ANTI-CONVULSANT [Concomitant]

REACTIONS (10)
  - BALANCE DISORDER [None]
  - COMPLEX PARTIAL SEIZURES [None]
  - CONDITION AGGRAVATED [None]
  - CONFUSIONAL STATE [None]
  - DISTURBANCE IN ATTENTION [None]
  - DYSARTHRIA [None]
  - FATIGUE [None]
  - SPEECH DISORDER [None]
  - UNEVALUABLE EVENT [None]
  - WEIGHT INCREASED [None]
